FAERS Safety Report 6898364-2 (Version None)
Quarter: 2010Q3

REPORT INFORMATION
  Report Type: 
  Country: None (occurrence: None)
  Receive Date: 20100802
  Receipt Date: 20071006
  Transmission Date: 20110219
  Serious: Yes (Other)
  Sender: FDA-Public Use
  Company Number: US-PFIZER INC-2007083848

PATIENT
  Sex: Female
  Weight: 83.2 kg

DRUGS (6)
  1. LYRICA [Suspect]
     Indication: NEURALGIA
     Route: 048
     Dates: start: 20070924
  2. LYRICA [Suspect]
     Indication: BACK INJURY
  3. LYRICA [Suspect]
     Indication: BACK PAIN
  4. SYNTHROID [Concomitant]
  5. MELOXICAM [Concomitant]
  6. HYDROCODONE BITARTRATE [Concomitant]

REACTIONS (6)
  - ARTHRALGIA [None]
  - DIZZINESS [None]
  - MYALGIA [None]
  - PAIN IN EXTREMITY [None]
  - VISION BLURRED [None]
  - WEIGHT INCREASED [None]
